FAERS Safety Report 5408282-4 (Version None)
Quarter: 2007Q3

REPORT INFORMATION
  Report Type: 
  Country: None (occurrence: None)
  Receive Date: 20070806
  Receipt Date: 20070806
  Transmission Date: 20080115
  Serious: Yes (Hospitalization)
  Sender: FDA-Public Use
  Company Number: None

PATIENT
  Age: 81 Year
  Sex: Male

DRUGS (2)
  1. ENALAPRIL MALEATE [Suspect]
     Indication: CARDIAC FAILURE CONGESTIVE
     Dosage: 1.25 MG EVERY DAY PO
     Route: 048
     Dates: start: 20060510, end: 20070612
  2. METOPROLOL SUCCINATE [Suspect]
     Dosage: 12.5MG BID PO
     Route: 048

REACTIONS (22)
  - ABDOMINAL PAIN LOWER [None]
  - ABDOMINAL TENDERNESS [None]
  - ATRIAL FIBRILLATION [None]
  - BACK PAIN [None]
  - CARDIAC FAILURE CONGESTIVE [None]
  - CARDIOMYOPATHY [None]
  - CHRONIC OBSTRUCTIVE PULMONARY DISEASE [None]
  - COAGULOPATHY [None]
  - CORONARY ARTERY DISEASE [None]
  - DEHYDRATION [None]
  - FALL [None]
  - HYPERGLYCAEMIA [None]
  - HYPERTENSION [None]
  - HYPONATRAEMIA [None]
  - HYPOTENSION [None]
  - HYPOXIA [None]
  - IMMOBILE [None]
  - INJURY [None]
  - INTERNATIONAL NORMALISED RATIO INCREASED [None]
  - OBESITY [None]
  - RENAL FAILURE [None]
  - TROPONIN INCREASED [None]
